FAERS Safety Report 7064739-4 (Version None)
Quarter: 2010Q4

REPORT INFORMATION
  Report Type: 
  Country: None (occurrence: None)
  Receive Date: 20101022
  Receipt Date: 20101022
  Transmission Date: 20110411
  Serious: Yes (Hospitalization)
  Sender: FDA-Public Use
  Company Number: None

PATIENT
  Sex: Female
  Weight: 81 kg

DRUGS (2)
  1. CALCIUM GLUCONATE [Suspect]
     Indication: HYPOCALCAEMIA
     Dosage: 23.20 MEQ 3X WK IV
  2. CALCIUM GLUCONATE [Suspect]
     Indication: PARATHYROIDECTOMY
     Dosage: 23.20 MEQ 3X WK IV

REACTIONS (6)
  - AGITATION [None]
  - ANXIETY [None]
  - BLOOD PRESSURE INCREASED [None]
  - DISORIENTATION [None]
  - DYSARTHRIA [None]
  - RESTLESSNESS [None]
